FAERS Safety Report 11409186 (Version 5)
Quarter: 2016Q3

REPORT INFORMATION
  Report Type: Report from Study
  Country: US (occurrence: US)
  Receive Date: 20150824
  Receipt Date: 20160726
  Transmission Date: 20161109
  Serious: Yes (Hospitalization)
  Sender: FDA-Public Use
  Company Number: PHHY2015US005651

PATIENT
  Age: 45 Year
  Sex: Female

DRUGS (1)
  1. GILENYA [Suspect]
     Active Substance: FINGOLIMOD HYDROCHLORIDE
     Indication: MULTIPLE SCLEROSIS
     Dosage: UNK UNK, QD
     Route: 048

REACTIONS (10)
  - Blood alkaline phosphatase increased [Recovered/Resolved]
  - Bronchitis [Recovered/Resolved]
  - Blood alkaline phosphatase increased [Recovered/Resolved]
  - Lymphocyte count decreased [Unknown]
  - Hepatic enzyme increased [Unknown]
  - Haematocrit abnormal [Unknown]
  - Blister [Recovered/Resolved]
  - White blood cell count increased [Recovered/Resolved]
  - Blood glucose abnormal [Unknown]
  - Hypertonic bladder [Unknown]

NARRATIVE: CASE EVENT DATE: 20141104
